FAERS Safety Report 22277529 (Version 1)
Quarter: 2023Q2

REPORT INFORMATION
  Report Type: Spontaneous
  Country: IT (occurrence: IT)
  Receive Date: 20230503
  Receipt Date: 20230503
  Transmission Date: 20230722
  Serious: Yes (Death, Other)
  Sender: FDA-Public Use
  Company Number: IT-AMGEN-ITASP2023072259

PATIENT

DRUGS (1)
  1. TRASTUZUMAB [Suspect]
     Active Substance: TRASTUZUMAB
     Indication: Oesophageal cancer metastatic
     Dosage: UNK
     Route: 065

REACTIONS (9)
  - Death [Fatal]
  - Oesophageal cancer metastatic [Unknown]
  - Hypercreatininaemia [Unknown]
  - Drug resistance [Unknown]
  - Hyperphosphataemia [Unknown]
  - Therapy partial responder [Unknown]
  - Fatigue [Unknown]
  - Diarrhoea [Unknown]
  - Mucosal inflammation [Unknown]
